FAERS Safety Report 6645193-0 (Version None)
Quarter: 2010Q1

REPORT INFORMATION
  Report Type: 
  Country: None (occurrence: None)
  Receive Date: 20100322
  Receipt Date: 20100308
  Transmission Date: 20100710
  Serious: Yes (Hospitalization, Other)
  Sender: FDA-Public Use
  Company Number: US-TYCO HEALTHCARE/MALLINCKRODT-T200902328

PATIENT
  Sex: Male

DRUGS (20)
  1. OPTIMARK [Suspect]
     Indication: NUCLEAR MAGNETIC RESONANCE IMAGING
     Dosage: UNK
     Dates: start: 20051227, end: 20051227
  2. OMNISCAN [Suspect]
     Indication: ANGIOGRAM
     Dosage: UNK
     Dates: start: 20050222, end: 20050222
  3. OMNISCAN [Suspect]
     Dosage: UNK
     Dates: start: 20050224, end: 20050224
  4. OMNISCAN [Suspect]
     Dosage: UNK
     Dates: start: 20050303, end: 20050303
  5. OMNISCAN [Suspect]
     Dosage: UNK
     Dates: start: 20050405, end: 20050405
  6. EPOGEN [Concomitant]
  7. SODIUM BICARBONATE [Concomitant]
  8. VITAMIN B6 [Concomitant]
  9. CALCIUM CARBONATE [Concomitant]
  10. ROCALTROL [Concomitant]
  11. PROGRAF [Concomitant]
  12. PREDNISONE TAB [Concomitant]
  13. FLOMAX [Concomitant]
  14. LASIX [Concomitant]
  15. ALLOPURINOL [Concomitant]
  16. CELLCEPT [Concomitant]
  17. COZAAR [Concomitant]
  18. PEPCID [Concomitant]
  19. THALIDOMIDE [Concomitant]
  20. ARANESP [Concomitant]

REACTIONS (25)
  - ACTINIC KERATOSIS [None]
  - ANAEMIA [None]
  - ARTERIOSCLEROSIS [None]
  - BLISTER [None]
  - CELLULITIS [None]
  - CLOSTRIDIAL INFECTION [None]
  - COLONIC POLYP [None]
  - DEVICE RELATED INFECTION [None]
  - DIARRHOEA [None]
  - HAEMORRHOIDS [None]
  - HIP FRACTURE [None]
  - LEUKOPENIA [None]
  - NEPHROGENIC SYSTEMIC FIBROSIS [None]
  - NEURODERMATITIS [None]
  - OEDEMA PERIPHERAL [None]
  - OFF LABEL USE [None]
  - OSTEOARTHRITIS [None]
  - OSTEOMA CUTIS [None]
  - OSTEOPENIA [None]
  - PARONYCHIA [None]
  - RENAL ARTERY THROMBOSIS [None]
  - SEPSIS [None]
  - SQUAMOUS CELL CARCINOMA [None]
  - STAPHYLOCOCCAL BACTERAEMIA [None]
  - THROMBOCYTOPENIA [None]
